FAERS Safety Report 8111392-4 (Version None)
Quarter: 2012Q1

REPORT INFORMATION
  Report Type: 
  Country: None (occurrence: None)
  Receive Date: 20120203
  Receipt Date: 20111031
  Transmission Date: 20120608
  Serious: No
  Sender: FDA-Public Use
  Company Number: US-GLAXOSMITHKLINE-A0951862A

PATIENT
  Age: 53 Year
  Sex: Male

DRUGS (3)
  1. MYSOLINE [Concomitant]
  2. LAMICTAL [Suspect]
     Indication: PRODUCT USED FOR UNKNOWN INDICATION
     Dosage: 200MG TWICE PER DAY
     Route: 048
     Dates: start: 20110801
  3. DILANTIN [Concomitant]

REACTIONS (2)
  - DRUG LEVEL DECREASED [None]
  - INCORRECT PRODUCT STORAGE [None]
